FAERS Safety Report 15318183 (Version 2)
Quarter: 2018Q4

REPORT INFORMATION
  Report Type: Report from Study
  Country: US (occurrence: US)
  Receive Date: 20180825
  Receipt Date: 20181008
  Transmission Date: 20190204
  Serious: Yes (Other)
  Sender: FDA-Public Use
  Company Number: US-009507513-1808USA009084

PATIENT
  Sex: Male

DRUGS (1)
  1. KEYTRUDA [Suspect]
     Active Substance: PEMBROLIZUMAB
     Indication: RECTAL CANCER METASTATIC
     Dosage: 200 MG EVERY 3 WEEKS
     Dates: start: 20170922, end: 20180124

REACTIONS (1)
  - Malignant neoplasm progression [Not Recovered/Not Resolved]
